FAERS Safety Report 24269064 (Version 2)
Quarter: 2024Q3

REPORT INFORMATION
  Report Type: Report from Study
  Country: CO (occurrence: None)
  Receive Date: 20240830
  Receipt Date: 20240903
  Transmission Date: 20241016
  Serious: Yes (Death, Other)
  Sender: ASTRAZENECA
  Company Number: 2024A197610

PATIENT
  Age: 30597 Day
  Sex: Female
  Weight: 83 kg

DRUGS (1)
  1. IMFINZI [Suspect]
     Active Substance: DURVALUMAB
     Indication: Lung neoplasm malignant
     Route: 042
     Dates: start: 20240618

REACTIONS (2)
  - Cardio-respiratory arrest [Fatal]
  - Off label use [Fatal]

NARRATIVE: CASE EVENT DATE: 20240618
